FAERS Safety Report 6736983-4 (Version None)
Quarter: 2010Q2

REPORT INFORMATION
  Report Type: 
  Country: None (occurrence: None)
  Receive Date: 20100523
  Receipt Date: 20100419
  Transmission Date: 20101027
  Serious: No
  Sender: FDA-Public Use
  Company Number: US-ALLERGAN-1005065US

PATIENT
  Age: 77 Year
  Sex: Male

DRUGS (2)
  1. COMBIGAN [Suspect]
     Indication: GLAUCOMA
     Dosage: 1 GTT, BID
     Route: 047
     Dates: start: 20100404
  2. UNSPECIFIED EYE DROPS [Concomitant]
     Indication: GLAUCOMA

REACTIONS (2)
  - DIZZINESS [None]
  - VISION BLURRED [None]
